FAERS Safety Report 4444881-4 (Version None)
Quarter: 2004Q3

REPORT INFORMATION
  Report Type: 
  Country: None (occurrence: None)
  Receive Date: 20040903
  Receipt Date: 20040818
  Transmission Date: 20050211
  Serious: Yes (Death, Life-Threatening)
  Sender: FDA-Public Use
  Company Number: DSA_24837_2004

PATIENT
  Age: 71 Year
  Sex: Male

DRUGS (5)
  1. ENALAPRIL MALEATE [Suspect]
     Indication: BLOOD PRESSURE INCREASED
     Dosage: DF PO
     Route: 048
     Dates: start: 20040804
  2. ASPIRIN [Concomitant]
  3. ATENOLOL [Concomitant]
  4. CANDESARTAN [Concomitant]
  5. STATIN [Concomitant]

REACTIONS (1)
  - ANGIONEUROTIC OEDEMA [None]
